FAERS Safety Report 4268567-4 (Version None)
Quarter: 2004Q1

REPORT INFORMATION
  Report Type: 
  Country: None (occurrence: None)
  Receive Date: 20040108
  Receipt Date: 20031212
  Transmission Date: 20041129
  Serious: Yes (Other)
  Sender: FDA-Public Use
  Company Number: JP-JNJFOC-20040100632

PATIENT
  Sex: Female

DRUGS (3)
  1. MICONAZOLE [Suspect]
     Indication: OESOPHAGEAL CANDIDIASIS
     Dosage: 400 MG, IN 1 DAY, ORAL
     Route: 048
     Dates: start: 20031110, end: 20031118
  2. MICONAZOLE [Suspect]
     Indication: ORAL CANDIDIASIS
     Dosage: 400 MG, IN 1 DAY, ORAL
     Route: 048
     Dates: start: 20031110, end: 20031118
  3. WARFARIN (WARFARIN) UNKNOWN [Suspect]
     Indication: DRUG USE FOR UNKNOWN INDICATION

REACTIONS (6)
  - DRUG INTERACTION [None]
  - INTERNATIONAL NORMALISED RATIO INCREASED [None]
  - INTRA-ABDOMINAL HAEMORRHAGE [None]
  - OESOPHAGEAL CANDIDIASIS [None]
  - ORAL CANDIDIASIS [None]
  - PROTHROMBIN TIME PROLONGED [None]
